FAERS Safety Report 5800366-1 (Version None)
Quarter: 2008Q3

REPORT INFORMATION
  Report Type: 
  Country: None (occurrence: None)
  Receive Date: 20080703
  Receipt Date: 20080630
  Transmission Date: 20090109
  Serious: Yes (Life-Threatening, Disabling)
  Sender: FDA-Public Use
  Company Number: US-MERCK-0807USA00083

PATIENT
  Sex: Female

DRUGS (1)
  1. SINGULAIR [Suspect]
     Route: 048

REACTIONS (4)
  - ALLERGIC GRANULOMATOUS ANGIITIS [None]
  - ANAPHYLACTOID REACTION [None]
  - OEDEMA [None]
  - RASH GENERALISED [None]
